FAERS Safety Report 6166945-X (Version None)
Quarter: 2009Q2

REPORT INFORMATION
  Report Type: 
  Country: None (occurrence: None)
  Receive Date: 20090422
  Receipt Date: 20090408
  Transmission Date: 20091009
  Serious: Yes (Life-Threatening, Hospitalization)
  Sender: FDA-Public Use
  Company Number: 1000005822

PATIENT
  Age: 34 Year
  Sex: Male

DRUGS (6)
  1. ESCITALOPRAM [Suspect]
     Dosage: ORAL
     Route: 048
     Dates: end: 20081101
  2. ALPRAZOLAM [Suspect]
     Dosage: ORAL
     Route: 048
     Dates: end: 20081101
  3. NORDAZ [Suspect]
     Dosage: ORAL
     Route: 048
     Dates: end: 20081101
  4. MEPRONIZINE [Suspect]
     Dosage: ORAL
     Route: 048
     Dates: end: 20081101
  5. ZOPICLONE [Suspect]
     Dosage: ORAL
     Route: 048
     Dates: end: 20081101
  6. NOCTRAN [Suspect]
     Dosage: ORAL
     Route: 048
     Dates: end: 20081101

REACTIONS (9)
  - DEEP VEIN THROMBOSIS [None]
  - ESCHAR [None]
  - GLASGOW COMA SCALE ABNORMAL [None]
  - HYPOTHERMIA [None]
  - HYPOTONIA [None]
  - INTENTIONAL OVERDOSE [None]
  - MYDRIASIS [None]
  - PNEUMONIA ASPIRATION [None]
  - RHABDOMYOLYSIS [None]
